FAERS Safety Report 6169174-9 (Version None)
Quarter: 2009Q2

REPORT INFORMATION
  Report Type: 
  Country: None (occurrence: None)
  Receive Date: 20090427
  Receipt Date: 20090417
  Transmission Date: 20091009
  Serious: Yes (Hospitalization, Other)
  Sender: FDA-Public Use
  Company Number: US-ABBOTT-09P-163-0568907-00

PATIENT
  Sex: Female
  Weight: 86.714 kg

DRUGS (9)
  1. HUMIRA [Suspect]
     Indication: RHEUMATOID ARTHRITIS
     Route: 058
     Dates: start: 20070101, end: 20090330
  2. HUMIRA [Suspect]
  3. METHOTREXATE [Concomitant]
     Indication: RHEUMATOID ARTHRITIS
     Dates: start: 20050101
  4. SYNTHROID [Concomitant]
     Indication: HYPOTHYROIDISM
  5. HYDROCHLOROTHIAZIDE [Concomitant]
     Indication: HYPERTENSION
  6. HYDROCHLOROTHIAZIDE [Concomitant]
     Indication: FLUID RETENTION
  7. EFFEXOR [Concomitant]
     Indication: DEPRESSION
  8. SEROQUEL [Concomitant]
     Indication: DEPRESSION
  9. CLONAZEPAM [Concomitant]
     Indication: INSOMNIA

REACTIONS (6)
  - ADHESION [None]
  - ARTHRALGIA [None]
  - FAECALOMA [None]
  - NECK PAIN [None]
  - PAIN IN EXTREMITY [None]
  - RECTAL HAEMORRHAGE [None]
